FAERS Safety Report 21906486 (Version 1)
Quarter: 2023Q1

REPORT INFORMATION
  Report Type: Spontaneous
  Country: ID (occurrence: ID)
  Receive Date: 20230125
  Receipt Date: 20230125
  Transmission Date: 20230417
  Serious: Yes (Other)
  Sender: FDA-Public Use
  Company Number: ID-NATCOUSA-2023-NATCOUSA-000129

PATIENT
  Age: 33 Year
  Sex: Male

DRUGS (1)
  1. IMATINIB MESYLATE [Suspect]
     Active Substance: IMATINIB MESYLATE
     Indication: Chronic myeloid leukaemia
     Dosage: 1 X 400 MG/DAY FOR TWO YEARS
     Route: 048

REACTIONS (3)
  - Chronic myeloid leukaemia [Unknown]
  - Drug resistance [Unknown]
  - Treatment failure [Unknown]
